FAERS Safety Report 7623561-8 (Version None)
Quarter: 2011Q3

REPORT INFORMATION
  Report Type: 
  Country: None (occurrence: None)
  Receive Date: 20110720
  Receipt Date: 20110718
  Transmission Date: 20111222
  Serious: Yes (Hospitalization)
  Sender: FDA-Public Use
  Company Number: GB-PERRIGO-11GB005756

PATIENT
  Age: 37 Year
  Sex: Female

DRUGS (5)
  1. CLOZAPINE [Suspect]
     Indication: INTENTIONAL OVERDOSE
     Dosage: OVERDOSE
     Route: 048
     Dates: start: 20110625, end: 20110625
  2. IBUPROFEN [Suspect]
     Indication: INTENTIONAL OVERDOSE
     Dosage: UNK
     Route: 048
     Dates: start: 20110625, end: 20110625
  3. CLOZAPINE [Suspect]
     Indication: SCHIZOPHRENIA
     Dosage: 300 MG, UNK
     Route: 048
     Dates: start: 20031128
  4. ABILIFY [Suspect]
     Indication: INTENTIONAL OVERDOSE
     Dosage: UNK
     Route: 065
     Dates: start: 20110625, end: 20110625
  5. VENLAFAXINE HYDROCHLORIDE [Suspect]
     Indication: INTENTIONAL OVERDOSE
     Dosage: UNK
     Route: 065

REACTIONS (1)
  - MULTIPLE DRUG OVERDOSE INTENTIONAL [None]
